FAERS Safety Report 7845006-5 (Version None)
Quarter: 2011Q4

REPORT INFORMATION
  Report Type: 
  Country: None (occurrence: None)
  Receive Date: 20111014
  Receipt Date: 20111005
  Transmission Date: 20120403
  Serious: Yes (Hospitalization, Other)
  Sender: FDA-Public Use
  Company Number: 2010SP063660

PATIENT
  Age: 44 Year
  Sex: Female
  Weight: 102.5129 kg

DRUGS (5)
  1. SYMBICORT [Concomitant]
  2. NUVARING [Suspect]
     Indication: CONTRACEPTION
     Dosage: ;QM;
     Dates: start: 20070601, end: 20081201
  3. NUVARING [Suspect]
     Indication: MENSTRUATION IRREGULAR
     Dosage: ;QM;
     Dates: start: 20070601, end: 20081201
  4. NUVARING [Suspect]
     Indication: CONTRACEPTION
     Dosage: ;QM;
     Dates: start: 20040901, end: 20061001
  5. NUVARING [Suspect]
     Indication: MENSTRUATION IRREGULAR
     Dosage: ;QM;
     Dates: start: 20040901, end: 20061001

REACTIONS (12)
  - PULMONARY EMBOLISM [None]
  - DEPRESSION [None]
  - DEEP VEIN THROMBOSIS [None]
  - INJURY [None]
  - MENTAL DISORDER [None]
  - INSOMNIA [None]
  - ANTIPHOSPHOLIPID ANTIBODIES [None]
  - HYPERTENSION [None]
  - TACHYCARDIA [None]
  - PANIC ATTACK [None]
  - EMOTIONAL DISORDER [None]
  - SYNCOPE [None]
